FAERS Safety Report 9996511 (Version 3)
Quarter: 2015Q3

REPORT INFORMATION
  Report Type: Spontaneous
  Country: US (occurrence: US)
  Receive Date: 20140311
  Receipt Date: 20150721
  Transmission Date: 20151125
  Serious: Yes (Hospitalization, Other)
  Sender: FDA-Public Use
  Company Number: US-GILEAD-2013-0072361

PATIENT
  Age: 59 Year
  Sex: Male
  Weight: 69.5 kg

DRUGS (42)
  1. BUDESONIDE. [Concomitant]
     Active Substance: BUDESONIDE
     Indication: GRAFT VERSUS HOST DISEASE
     Dosage: 3 MG, BID
     Route: 048
     Dates: start: 20130111
  2. MAGNESIUM SULFATE. [Concomitant]
     Active Substance: MAGNESIUM SULFATE
     Dosage: 4 G, ONCE
     Route: 042
     Dates: start: 20130118, end: 20130118
  3. MAGNESIUM SULFATE. [Concomitant]
     Active Substance: MAGNESIUM SULFATE
     Dosage: 1 G, PRN
     Route: 042
     Dates: start: 20130212, end: 20130215
  4. PREDNISONE. [Concomitant]
     Active Substance: PREDNISONE
     Indication: GRAFT VERSUS HOST DISEASE
     Dosage: 30 MG, BID
     Route: 048
     Dates: start: 20130118, end: 20130124
  5. VORICONAZOLE. [Concomitant]
     Active Substance: VORICONAZOLE
     Indication: PROPHYLAXIS
     Dosage: 200 MG, BID
     Route: 048
     Dates: start: 20130115, end: 20130212
  6. VALCYTE [Concomitant]
     Active Substance: VALGANCICLOVIR HYDROCHLORIDE
     Indication: CYTOMEGALOVIRUS INFECTION
     Dosage: 450 MG, BID
     Route: 048
     Dates: start: 20130125, end: 20130218
  7. MAGNESIUM SULFATE. [Concomitant]
     Active Substance: MAGNESIUM SULFATE
     Indication: HYPOMAGNESAEMIA
     Dosage: 4 G, ONCE
     Route: 042
     Dates: start: 20130115, end: 20130115
  8. VORICONAZOLE. [Concomitant]
     Active Substance: VORICONAZOLE
     Dosage: 200 MG, BID
     Route: 048
     Dates: start: 20130214
  9. PREVACID [Concomitant]
     Active Substance: LANSOPRAZOLE
     Indication: DYSPEPSIA
     Dosage: 30 MG, QD
     Route: 048
     Dates: start: 20130215, end: 20130218
  10. LANTUS [Concomitant]
     Active Substance: INSULIN GLARGINE
     Indication: DIABETES MELLITUS
     Dosage: UNK, QHS
     Route: 058
     Dates: start: 20130115
  11. MAGNESIUM SULFATE. [Concomitant]
     Active Substance: MAGNESIUM SULFATE
     Dosage: 2 G, BID
     Route: 042
     Dates: start: 20130218, end: 20130223
  12. PREDNISONE. [Concomitant]
     Active Substance: PREDNISONE
     Dosage: 15 MG, BID
     Route: 048
     Dates: start: 20130208, end: 20130214
  13. PREDNISONE. [Concomitant]
     Active Substance: PREDNISONE
     Dosage: 10 MG, BID
     Route: 048
     Dates: start: 20130216, end: 20130220
  14. MAALOX PLUS                        /00018101/ [Concomitant]
     Indication: DYSPEPSIA
     Dosage: 30 ML, PRN
     Route: 048
     Dates: start: 20130213, end: 20130214
  15. VISTIDE [Suspect]
     Active Substance: CIDOFOVIR
     Indication: BK VIRUS INFECTION
     Dosage: 36 MG, ONCE
     Route: 042
     Dates: start: 20130214, end: 20130214
  16. PREDNISONE. [Concomitant]
     Active Substance: PREDNISONE
     Dosage: 30 MG, QD
     Route: 048
     Dates: start: 20130125, end: 20130131
  17. BECLOMETHASONE IN CORN OIL [Concomitant]
     Indication: GRAFT VERSUS HOST DISEASE
     Dosage: 2 MG, BID
     Route: 048
     Dates: start: 20130206
  18. VISTIDE [Suspect]
     Active Substance: CIDOFOVIR
     Dosage: 36 MG, ONCE
     Route: 042
     Dates: start: 20130205, end: 20130205
  19. PREDNISONE. [Concomitant]
     Active Substance: PREDNISONE
     Dosage: 20 MG, BID
     Route: 048
     Dates: start: 20130201, end: 20130207
  20. PREDNISONE. [Concomitant]
     Active Substance: PREDNISONE
     Dosage: 10 MG, QD
     Route: 048
     Dates: start: 20130215, end: 20130215
  21. NOVOLOG [Concomitant]
     Active Substance: INSULIN ASPART
     Indication: DIABETES MELLITUS
     Dosage: UNK
     Route: 058
     Dates: start: 20130115, end: 20130211
  22. CIPRO                              /00697201/ [Concomitant]
     Active Substance: CIPROFLOXACIN
     Indication: BK VIRUS INFECTION
     Dosage: 500 MG, BID
     Route: 048
     Dates: start: 20130129
  23. NORVASC [Concomitant]
     Active Substance: AMLODIPINE BESYLATE
     Indication: HYPERTENSION
     Dosage: 5 MG, QD
     Route: 048
     Dates: start: 20130205
  24. PROTONIX [Concomitant]
     Active Substance: PANTOPRAZOLE SODIUM
     Indication: DYSPEPSIA
     Dosage: 40 MG, QD
     Route: 048
     Dates: start: 20130212, end: 20130214
  25. COLACE [Concomitant]
     Active Substance: DOCUSATE SODIUM
     Indication: CONSTIPATION
     Dosage: 100 MG, ONCE
     Route: 048
     Dates: start: 20130214, end: 20130214
  26. ZOFRAN [Concomitant]
     Active Substance: ONDANSETRON HYDROCHLORIDE
     Indication: NAUSEA
     Dosage: 8 MG, PRN
     Route: 048
     Dates: start: 20130215
  27. ANUSOL                             /00156502/ [Concomitant]
     Indication: PROCTALGIA
     Dosage: 1 DF, PRN
     Route: 061
     Dates: start: 20121216
  28. ANUSOL                             /00156502/ [Concomitant]
     Indication: ANORECTAL DISCOMFORT
  29. PROGRAF [Concomitant]
     Active Substance: TACROLIMUS\TACROLIMUS ANHYDROUS
     Indication: PROPHYLAXIS AGAINST GRAFT VERSUS HOST DISEASE
     Dosage: 1.5 MG, BID
     Route: 048
     Dates: start: 20130111
  30. PREDNISONE. [Concomitant]
     Active Substance: PREDNISONE
     Dosage: 15 MG, QD
     Route: 048
     Dates: start: 20130215, end: 20130215
  31. AMBIEN [Concomitant]
     Active Substance: ZOLPIDEM TARTRATE
     Indication: INSOMNIA
     Dosage: UNK
     Dates: start: 20130122, end: 20130212
  32. VISTIDE [Suspect]
     Active Substance: CIDOFOVIR
     Dosage: 350 MG, Q1WK
     Route: 043
     Dates: start: 20130227
  33. URSO [Concomitant]
     Active Substance: URSODIOL
     Indication: PROPHYLAXIS
     Dosage: 500 MG, BID
     Route: 048
     Dates: start: 20121206
  34. ANUSOL                             /00156502/ [Concomitant]
     Indication: ANAL PRURITUS
  35. MAGNESIUM SULFATE. [Concomitant]
     Active Substance: MAGNESIUM SULFATE
     Dosage: 4 G, ONCE
     Route: 042
     Dates: start: 20130117, end: 20130117
  36. PREDNISONE. [Concomitant]
     Active Substance: PREDNISONE
     Dosage: 20 MG, QD
     Route: 048
     Dates: start: 20130125, end: 20130131
  37. NOVOLOG [Concomitant]
     Active Substance: INSULIN ASPART
     Dosage: 5 IU, TID
     Route: 058
     Dates: start: 20130212
  38. AMBIEN [Concomitant]
     Active Substance: ZOLPIDEM TARTRATE
     Dosage: 5 MG, PRN
     Route: 048
     Dates: start: 20130215
  39. XANAX [Concomitant]
     Active Substance: ALPRAZOLAM
     Indication: ANXIETY
     Dosage: 0.5 MG, QD
     Route: 048
     Dates: start: 20130206, end: 20130212
  40. XANAX [Concomitant]
     Active Substance: ALPRAZOLAM
     Dosage: 0.5 MG, QD
     Route: 048
     Dates: start: 20130213
  41. POTASSIUM CHLORIDE. [Concomitant]
     Active Substance: POTASSIUM CHLORIDE
     Indication: HYPOKALAEMIA
     Dosage: 10 MEQ, PRN
     Route: 042
     Dates: start: 20130214, end: 20130215
  42. POTASSIUM CHLORIDE. [Concomitant]
     Active Substance: POTASSIUM CHLORIDE
     Dosage: 20 MEQ, BID
     Route: 042
     Dates: start: 20130218, end: 20130223

REACTIONS (1)
  - Pancytopenia [Recovering/Resolving]

NARRATIVE: CASE EVENT DATE: 20130218
